FAERS Safety Report 7884106-0 (Version None)
Quarter: 2011Q4

REPORT INFORMATION
  Report Type: 
  Country: None (occurrence: None)
  Receive Date: 20111102
  Receipt Date: 20111019
  Transmission Date: 20120403
  Serious: Yes (Hospitalization, Other)
  Sender: FDA-Public Use
  Company Number: US-SANOFI-AVENTIS-2011SA071450

PATIENT
  Age: 49 Year
  Sex: Male

DRUGS (11)
  1. DOCETAXEL [Suspect]
     Indication: LIP AND/OR ORAL CAVITY CANCER
     Route: 042
     Dates: start: 20110525, end: 20110525
  2. LOPERAMIDE HCL [Concomitant]
  3. DILAUDID [Concomitant]
  4. METOCLOPRAMIDE HYDROCHLORIDE [Concomitant]
  5. HYDROCODONE BITARTRATE [Concomitant]
  6. PROCHLORPERAZINE MALEATE [Concomitant]
  7. METHYLDOPA [Concomitant]
  8. BLINDED THERAPY [Suspect]
     Indication: LIP AND/OR ORAL CAVITY CANCER
     Route: 065
     Dates: start: 20110511, end: 20110529
  9. DEXAMETHASONE [Concomitant]
  10. CISPLATIN [Suspect]
     Indication: LIP AND/OR ORAL CAVITY CANCER
     Route: 042
     Dates: start: 20110525, end: 20110525
  11. BACLOFEN [Concomitant]

REACTIONS (13)
  - HYPOMAGNESAEMIA [None]
  - DIARRHOEA [None]
  - FEEDING TUBE COMPLICATION [None]
  - LOBAR PNEUMONIA [None]
  - ANAEMIA [None]
  - HYPOCALCAEMIA [None]
  - POSTOPERATIVE WOUND INFECTION [None]
  - NAUSEA [None]
  - DEHYDRATION [None]
  - HYPONATRAEMIA [None]
  - VOMITING [None]
  - HYPOALBUMINAEMIA [None]
  - HYPOKALAEMIA [None]
